FAERS Safety Report 16353697 (Version 1)
Quarter: 2019Q2

REPORT INFORMATION
  Report Type: Spontaneous
  Country: CZ (occurrence: CZ)
  Receive Date: 20190524
  Receipt Date: 20190524
  Transmission Date: 20190711
  Serious: Yes (Life-Threatening, Hospitalization, Other)
  Sender: FDA-Public Use
  Company Number: CZ-PFIZER INC-2019215270

PATIENT
  Age: 61 Year
  Sex: Female

DRUGS (6)
  1. ETOPOSIDE. [Suspect]
     Active Substance: ETOPOSIDE
     Indication: STEM CELL TRANSPLANT
     Dosage: 320 MG, UNK
     Route: 042
     Dates: start: 20190222
  2. ALKERAN [Suspect]
     Active Substance: MELPHALAN
     Indication: STEM CELL TRANSPLANT
     Dosage: 224 MG, SINGLE
     Route: 042
     Dates: start: 20190226
  3. CYTOSAR [Suspect]
     Active Substance: CYTARABINE
     Indication: STEM CELL TRANSPLANT
     Dosage: 640 MG, 1X/DAY, 2 DOSAGES 320 MG DAILY
     Route: 042
     Dates: start: 20190222
  4. TEPADINA [Suspect]
     Active Substance: THIOTEPA
     Indication: STEM CELL TRANSPLANT
     Dosage: 584 MG, SINGLE
     Route: 042
     Dates: start: 20190221
  5. LINEZOLID. [Concomitant]
     Active Substance: LINEZOLID
     Dosage: 1200 MG, DAILY, 2 DOSAGES 600 MG DAILY
     Dates: start: 20190228, end: 20190319
  6. MERONEM [Concomitant]
     Active Substance: MEROPENEM
     Dosage: 6 G, DAILY, 3 DOSAGES 2 G DAILY
     Dates: start: 20190228, end: 20190319

REACTIONS (5)
  - Product use in unapproved indication [Unknown]
  - Confusional state [Unknown]
  - Disorientation [Unknown]
  - Off label use [Unknown]
  - Gastrointestinal haemorrhage [Recovered/Resolved]

NARRATIVE: CASE EVENT DATE: 20190222
